FAERS Safety Report 21905070 (Version 1)
Quarter: 2023Q1

REPORT INFORMATION
  Report Type: Spontaneous
  Country: US (occurrence: None)
  Receive Date: 20230123
  Receipt Date: 20230123
  Transmission Date: 20230417
  Serious: No
  Sender: FDA-Public Use
  Company Number: None

PATIENT
  Age: 46 Year
  Sex: Female
  Weight: 58.5 kg

DRUGS (1)
  1. METHYLPHENIDATE [Suspect]
     Active Substance: METHYLPHENIDATE
     Dates: start: 20230115, end: 20230120

REACTIONS (3)
  - Product substitution issue [None]
  - Depressed mood [None]
  - Depression [None]

NARRATIVE: CASE EVENT DATE: 20230117
